FAERS Safety Report 18537390 (Version 1)
Quarter: 2020Q4

REPORT INFORMATION
  Report Type: Spontaneous
  Country: ES (occurrence: ES)
  Receive Date: 20201124
  Receipt Date: 20201124
  Transmission Date: 20210114
  Serious: Yes (Other)
  Sender: FDA-Public Use
  Company Number: ES-AUROBINDO-AUR-APL-2020-057548

PATIENT
  Age: 14 Year
  Sex: Female
  Weight: 53 kg

DRUGS (4)
  1. CLARITHROMYCIN. [Suspect]
     Active Substance: CLARITHROMYCIN
     Indication: CHRONIC GRANULOMATOUS DISEASE
     Dosage: || DOSIS UNIDAD FRECUENCIA: 1000 MG-MILIGRAMOS || DOSIS POR TOMA: 500 MG-MILIGRAMOS || N? TOMAS POR
     Route: 048
     Dates: start: 20160504, end: 20160506
  2. COTRIMOXAZOL [Concomitant]
     Active Substance: SULFAMETHOXAZOLE\TRIMETHOPRIM
     Indication: CHRONIC GRANULOMATOUS DISEASE
     Dosage: || DOSIS UNIDAD FRECUENCIA: 2 DF-FORMAS DE DOSIFICACI?N || DOSIS POR TOMA: 1 DF-FORMAS DE DOSIFICACI
     Route: 042
     Dates: start: 20140604
  3. AMBISOME [Suspect]
     Active Substance: AMPHOTERICIN B
     Indication: CHRONIC GRANULOMATOUS DISEASE
     Dosage: || DOSIS UNIDAD FRECUENCIA: 270 MG-MILIGRAMOS || DOSIS POR TOMA: 270 MG-MILIGRAMOS || N? TOMAS POR U
     Route: 042
     Dates: start: 20160504, end: 20160512
  4. IMIPENEM [Suspect]
     Active Substance: IMIPENEM
     Indication: CHRONIC GRANULOMATOUS DISEASE
     Dosage: || DOSIS UNIDAD FRECUENCIA: 3 DF-FORMAS DE DOSIFICACI?N || DOSIS POR TOMA: 1 DF-FORMAS DE DOSIFICACI
     Route: 042
     Dates: start: 20160504, end: 20160511

REACTIONS (2)
  - Hypokalaemia [Recovered/Resolved]
  - Vomiting [Recovered/Resolved]

NARRATIVE: CASE EVENT DATE: 201605
